FAERS Safety Report 12949831 (Version 1)
Quarter: 2016Q4

REPORT INFORMATION
  Report Type: Spontaneous
  Country: JP (occurrence: JP)
  Receive Date: 20161117
  Receipt Date: 20161117
  Transmission Date: 20170207
  Serious: Yes (Other)
  Sender: FDA-Public Use
  Company Number: JP-PFIZER INC-2016530311

PATIENT
  Age: 58 Year
  Sex: Male
  Weight: 60 kg

DRUGS (35)
  1. CAMPTO [Suspect]
     Active Substance: IRINOTECAN
     Dosage: 200 MG, 1X/DAY
     Route: 041
     Dates: start: 20140901, end: 20140901
  2. ELPLAT [Suspect]
     Active Substance: OXALIPLATIN
     Dosage: 110 MG, 1X/DAY
     Route: 041
     Dates: start: 20140930, end: 20140930
  3. ELPLAT [Suspect]
     Active Substance: OXALIPLATIN
     Dosage: 80 MG, 1X/DAY
     Route: 041
     Dates: start: 20141028, end: 20141028
  4. ELPLAT [Suspect]
     Active Substance: OXALIPLATIN
     Dosage: 250 MG, 1X/DAY
     Route: 041
     Dates: start: 20140623, end: 20140623
  5. LEVOFOLINATE [Suspect]
     Active Substance: LEVOLEUCOVORIN CALCIUM
     Dosage: 325 MG, 1X/DAY
     Route: 041
     Dates: start: 20140930, end: 20140930
  6. LEVOFOLINATE [Suspect]
     Active Substance: LEVOLEUCOVORIN CALCIUM
     Dosage: 325 MG, 1X/DAY
     Route: 041
     Dates: start: 20141111, end: 20141111
  7. CAMPTO [Suspect]
     Active Substance: IRINOTECAN
     Dosage: 200 MG, 1X/DAY
     Route: 041
     Dates: start: 20141111, end: 20141111
  8. LEVOFOLINATE [Suspect]
     Active Substance: LEVOLEUCOVORIN CALCIUM
     Dosage: 325 MG, 1X/DAY
     Route: 041
     Dates: start: 20140718, end: 20140718
  9. LEVOFOLINATE [Suspect]
     Active Substance: LEVOLEUCOVORIN CALCIUM
     Dosage: 325 MG, 1X/DAY
     Route: 041
     Dates: start: 20140916, end: 20140916
  10. CAMPTO [Suspect]
     Active Substance: IRINOTECAN
     Dosage: 200 MG, 1X/DAY
     Route: 041
     Dates: start: 20140718, end: 20140718
  11. CAMPTO [Suspect]
     Active Substance: IRINOTECAN
     Dosage: 200 MG, 1X/DAY
     Route: 041
     Dates: start: 20140818, end: 20140818
  12. CAMPTO [Suspect]
     Active Substance: IRINOTECAN
     Dosage: 200 MG, 1X/DAY
     Route: 041
     Dates: start: 20141014, end: 20141014
  13. ELPLAT [Suspect]
     Active Substance: OXALIPLATIN
     Dosage: 110 MG, 1X/DAY
     Route: 041
     Dates: start: 20140801, end: 20140801
  14. ELPLAT [Suspect]
     Active Substance: OXALIPLATIN
     Dosage: 110 MG, 1X/DAY
     Route: 041
     Dates: start: 20140718, end: 20140718
  15. LEVOFOLINATE [Suspect]
     Active Substance: LEVOLEUCOVORIN CALCIUM
     Dosage: 325 MG, 1X/DAY
     Route: 041
     Dates: start: 20140818, end: 20140818
  16. LEVOFOLINATE [Suspect]
     Active Substance: LEVOLEUCOVORIN CALCIUM
     Dosage: 325 MG, 1X/DAY
     Route: 041
     Dates: start: 20140901, end: 20140901
  17. CAMPTO [Suspect]
     Active Substance: IRINOTECAN
     Dosage: 200 MG, 1X/DAY
     Route: 041
     Dates: start: 20141125, end: 20141125
  18. LEVOFOLINATE [Suspect]
     Active Substance: LEVOLEUCOVORIN CALCIUM
     Indication: PANCREATIC CARCINOMA
     Dosage: 325 MG, 1X/DAY
     Route: 041
     Dates: start: 20140623, end: 20140623
  19. LEVOFOLINATE [Suspect]
     Active Substance: LEVOLEUCOVORIN CALCIUM
     Dosage: 325 MG, 1X/DAY
     Route: 041
     Dates: start: 20140801, end: 20140801
  20. LEVOFOLINATE [Suspect]
     Active Substance: LEVOLEUCOVORIN CALCIUM
     Dosage: 325 MG, 1X/DAY
     Route: 041
     Dates: start: 20141014, end: 20141014
  21. ELPLAT [Suspect]
     Active Substance: OXALIPLATIN
     Dosage: 110 MG, 1X/DAY
     Route: 041
     Dates: start: 20140901, end: 20140901
  22. CAMPTO [Suspect]
     Active Substance: IRINOTECAN
     Indication: PANCREATIC CARCINOMA
     Dosage: 250 MG, 1X/DAY
     Route: 041
     Dates: start: 20140623, end: 20140623
  23. CAMPTO [Suspect]
     Active Substance: IRINOTECAN
     Dosage: 200 MG, 1X/DAY
     Route: 041
     Dates: start: 20140916, end: 20140916
  24. CAMPTO [Suspect]
     Active Substance: IRINOTECAN
     Dosage: 200 MG, 1X/DAY
     Route: 042
     Dates: start: 20140801, end: 20140801
  25. CAMPTO [Suspect]
     Active Substance: IRINOTECAN
     Dosage: 200 MG, 1X/DAY
     Route: 041
     Dates: start: 20140930, end: 20140930
  26. CAMPTO [Suspect]
     Active Substance: IRINOTECAN
     Dosage: 200 MG, 1X/DAY
     Route: 041
     Dates: start: 20141209, end: 20141209
  27. ELPLAT [Suspect]
     Active Substance: OXALIPLATIN
     Dosage: 110 MG, 1X/DAY
     Route: 041
     Dates: start: 20140718, end: 20140718
  28. ELPLAT [Suspect]
     Active Substance: OXALIPLATIN
     Dosage: 110 MG, 1X/DAY
     Route: 041
     Dates: start: 20141014, end: 20141014
  29. LEVOFOLINATE [Suspect]
     Active Substance: LEVOLEUCOVORIN CALCIUM
     Dosage: 325 MG, 1X/DAY
     Route: 041
     Dates: start: 20141028, end: 20141028
  30. LEVOFOLINATE [Suspect]
     Active Substance: LEVOLEUCOVORIN CALCIUM
     Dosage: 325 MG, 1X/DAY
     Route: 041
     Dates: start: 20141125, end: 20141125
  31. 5-FU [Concomitant]
     Active Substance: FLUOROURACIL
     Dosage: 4000 MG/BODY/D1-2 (2359.9 MG/M2/D1-2)
     Dates: start: 20140623, end: 20141209
  32. CAMPTO [Suspect]
     Active Substance: IRINOTECAN
     Dosage: 200 MG, 1X/DAY
     Route: 041
     Dates: start: 20141028, end: 20141028
  33. ELPLAT [Suspect]
     Active Substance: OXALIPLATIN
     Indication: PANCREATIC CARCINOMA
     Dosage: 140 MG/M2, 1X/DAY
     Route: 041
     Dates: start: 20140623, end: 20140623
  34. ELPLAT [Suspect]
     Active Substance: OXALIPLATIN
     Dosage: 110 MG, 1X/DAY
     Route: 041
     Dates: start: 20140916, end: 20140916
  35. LEVOFOLINATE [Suspect]
     Active Substance: LEVOLEUCOVORIN CALCIUM
     Dosage: 325 MG, 1X/DAY
     Route: 041
     Dates: start: 20141209, end: 20141209

REACTIONS (11)
  - Platelet count decreased [Unknown]
  - Vomiting [Unknown]
  - Stomatitis [Unknown]
  - Nausea [Unknown]
  - Neutrophil count decreased [Unknown]
  - Pyrexia [Unknown]
  - Fatigue [Unknown]
  - Peripheral sensory neuropathy [Unknown]
  - Haemoglobin decreased [Unknown]
  - Decreased appetite [Unknown]
  - White blood cell count decreased [Unknown]

NARRATIVE: CASE EVENT DATE: 20140630
